FAERS Safety Report 10058472 (Version 1)
Quarter: 2014Q2

REPORT INFORMATION
  Report Type: Spontaneous
  Country: IE (occurrence: IE)
  Receive Date: 20140404
  Receipt Date: 20140404
  Transmission Date: 20141212
  Serious: Yes (Hospitalization, Other)
  Sender: FDA-Public Use
  Company Number: IE-ROCHE-1372189

PATIENT
  Age: 86 Year
  Sex: Male
  Weight: 88.5 kg

DRUGS (6)
  1. TAMIFLU [Suspect]
     Indication: INFLUENZA
     Route: 048
     Dates: start: 20140225, end: 20140225
  2. CLARITHROMYCIN [Concomitant]
     Indication: LOWER RESPIRATORY TRACT INFECTION
     Route: 065
     Dates: start: 20140224, end: 20140225
  3. MIDONE [Concomitant]
     Indication: ORTHOSTATIC HYPOTENSION
     Route: 065
     Dates: start: 20140212, end: 20140310
  4. CLOPIDOGREL [Concomitant]
     Indication: PERIPHERAL VASCULAR DISORDER
     Route: 065
     Dates: start: 20140116, end: 20140310
  5. FLUCLOXACILLIN [Concomitant]
     Route: 065
     Dates: start: 20140114, end: 20140224
  6. CIPROFLOXACIN [Concomitant]
     Route: 065
     Dates: start: 20140114, end: 20140224

REACTIONS (2)
  - Exfoliative rash [Recovered/Resolved]
  - Dyspnoea [Recovered/Resolved]
